FAERS Safety Report 10009467 (Version 2)
Quarter: 2014Q2

REPORT INFORMATION
  Report Type: Report from Study
  Country: US (occurrence: US)
  Receive Date: 20140313
  Receipt Date: 20140505
  Transmission Date: 20141212
  Serious: Yes (Other)
  Sender: FDA-Public Use
  Company Number: PHEH2014US005053

PATIENT
  Sex: Female

DRUGS (1)
  1. TEGRETOL [Suspect]
     Dosage: UNK UKN, UNK

REACTIONS (3)
  - Nephrolithiasis [Unknown]
  - Urinary tract infection [Unknown]
  - Malaise [Unknown]
